FAERS Safety Report 4320341-6 (Version None)
Quarter: 2004Q1

REPORT INFORMATION
  Report Type: 
  Country: None (occurrence: None)
  Receive Date: 20040317
  Receipt Date: 20040305
  Transmission Date: 20041129
  Serious: Yes (Life-Threatening, Hospitalization)
  Sender: FDA-Public Use
  Company Number: OMPQ-NO-0403S-0186

PATIENT
  Age: 74 Year
  Sex: Male

DRUGS (1)
  1. OMNIPAQUE 70 [Suspect]
     Indication: PANCREATICODUODENECTOMY
     Dosage: 100 ML, SINGLE DOSE, I.V.
     Route: 042
     Dates: start: 20040301, end: 20040301

REACTIONS (8)
  - BACK PAIN [None]
  - CARDIO-RESPIRATORY ARREST [None]
  - CONDITION AGGRAVATED [None]
  - FLUSHING [None]
  - LOSS OF CONSCIOUSNESS [None]
  - POSTOPERATIVE INFECTION [None]
  - SEPTIC SHOCK [None]
  - TACHYCARDIA [None]
